FAERS Safety Report 17036892 (Version 2)
Quarter: 2019Q4

REPORT INFORMATION
  Report Type: Report from Study
  Country: None (occurrence: SE)
  Receive Date: 20191115
  Receipt Date: 20191126
  Transmission Date: 20200122
  Serious: Yes (Other)
  Sender: FDA-Public Use
  Company Number: SE-ABBVIE-19K-150-2878863-00

PATIENT
  Sex: Male
  Weight: 113 kg

DRUGS (5)
  1. DUODOPA [Suspect]
     Active Substance: CARBIDOPA\LEVODOPA
     Route: 050
     Dates: start: 20171004
  2. FOLIC ACID. [Concomitant]
     Active Substance: FOLIC ACID
     Indication: PARKINSON^S DISEASE
     Route: 048
  3. MADOPARK [Concomitant]
     Active Substance: BENSERAZIDE HYDROCHLORIDE\LEVODOPA
     Indication: PARKINSON^S DISEASE
     Dosage: MADOPARK DEPOT
     Route: 048
  4. COBALAMIN [Concomitant]
     Active Substance: COBALAMIN
     Indication: PARKINSON^S DISEASE
     Route: 058
  5. DUODOPA [Suspect]
     Active Substance: CARBIDOPA\LEVODOPA
     Indication: PARKINSON^S DISEASE
     Route: 050
     Dates: start: 20170921, end: 2017

REACTIONS (11)
  - Impaired healing [Unknown]
  - Skin abrasion [Unknown]
  - On and off phenomenon [Unknown]
  - Dystonia [Unknown]
  - Therapeutic product effect incomplete [Unknown]
  - Erysipelas [Recovered/Resolved]
  - Muscle spasms [Not Recovered/Not Resolved]
  - Device physical property issue [Unknown]
  - Muscular weakness [Unknown]
  - Feeling abnormal [Unknown]
  - Wound [Unknown]

NARRATIVE: CASE EVENT DATE: 2017
